FAERS Safety Report 7383093-1 (Version None)
Quarter: 2011Q1

REPORT INFORMATION
  Report Type: 
  Country: None (occurrence: None)
  Receive Date: 20110330
  Receipt Date: 20110324
  Transmission Date: 20110831
  Serious: Yes (Other)
  Sender: FDA-Public Use
  Company Number: US-PFIZER INC-2006059477

PATIENT
  Sex: Female

DRUGS (8)
  1. NEURONTIN [Suspect]
     Indication: BIPOLAR DISORDER
     Dosage: UNK
     Dates: start: 19960101
  2. NEURONTIN [Suspect]
     Dosage: 400 MG, 4X/DAY
     Dates: start: 20061020, end: 20061031
  3. GABAPENTIN [Suspect]
     Dosage: 300 MG, 3X/DAY
     Dates: start: 20011021
  4. NEURONTIN [Suspect]
     Indication: PAIN IN EXTREMITY
     Dosage: 300 MG, 3X/DAY
     Dates: start: 20001126
  5. NEURONTIN [Suspect]
     Dosage: 800 MG, 4X/DAY
     Dates: start: 20040614, end: 20040617
  6. NEURONTIN [Suspect]
     Dosage: UNK
     Dates: start: 20030605
  7. NEURONTIN [Suspect]
     Dosage: 800 MG, 1X/DAY
     Route: 048
     Dates: start: 20040613
  8. GABAPENTIN [Suspect]
     Dosage: 400 MG, 4X/DAY
     Dates: start: 20050914, end: 20050915

REACTIONS (1)
  - SUICIDAL IDEATION [None]
